FAERS Safety Report 19320243 (Version 1)
Quarter: 2021Q2

REPORT INFORMATION
  Report Type: Report from Study
  Country: US (occurrence: US)
  Receive Date: 20210527
  Receipt Date: 20210527
  Transmission Date: 20210717
  Serious: No
  Sender: FDA-Public Use
  Company Number: NVSC2021US119546

PATIENT
  Sex: Female

DRUGS (1)
  1. COSENTYX [Suspect]
     Active Substance: SECUKINUMAB
     Indication: PSORIATIC ARTHROPATHY
     Dosage: UNK UNK, QW FOR 5 WEEKS AND THEN Q4, BENEATH THE SKIN USUALLY VIA INJECTION
     Route: 058

REACTIONS (2)
  - Diarrhoea [Unknown]
  - Nasopharyngitis [Unknown]
